FAERS Safety Report 9157243 (Version 1)
Quarter: 2013Q1

REPORT INFORMATION
  Report Type: Spontaneous
  Country: IT (occurrence: None)
  Receive Date: 20130212
  Receipt Date: 20130212
  Transmission Date: 20140127
  Serious: Yes (Hospitalization)
  Sender: FDA-Public Use
  Company Number: FK201300427

PATIENT
  Age: 82 Year
  Sex: Female

DRUGS (1)
  1. GEMCITABINE (MANUFACTURER UNKNOWN) (GEMCITABINE) (GEMCITABINE) [Suspect]
     Indication: PANCREATIC CARCINOMA METASTATIC
     Dosage: 1000 MG/MQ INFUSION EVERY 7 DAYS, INTRAVENOUS

REACTIONS (2)
  - Skin necrosis [None]
  - Anaemia [None]
